FAERS Safety Report 25764502 (Version 1)
Quarter: 2025Q3

REPORT INFORMATION
  Report Type: Spontaneous
  Country: US (occurrence: US)
  Receive Date: 20250905
  Receipt Date: 20250905
  Transmission Date: 20251021
  Serious: No
  Sender: DOMPE FARMACEUTICI
  Company Number: US-FARMAPROD-202501-0220

PATIENT
  Age: 58 Year
  Sex: Female

DRUGS (20)
  1. OXERVATE [Suspect]
     Active Substance: CENEGERMIN-BKBJ
     Indication: Neurotrophic keratopathy
     Route: 047
     Dates: start: 20220920
  2. OXERVATE [Suspect]
     Active Substance: CENEGERMIN-BKBJ
     Route: 047
     Dates: start: 20250116
  3. OXERVATE [Suspect]
     Active Substance: CENEGERMIN-BKBJ
  4. ATROPINE SULFATE [Concomitant]
     Active Substance: ATROPINE SULFATE
  5. REFRESH LACRI-LUBE [Concomitant]
     Active Substance: MINERAL OIL\PETROLATUM
  6. REFRESH TEARS PF [Concomitant]
     Active Substance: CARBOXYMETHYLCELLULOSE SODIUM\GLYCERIN
  7. PREDNISOLONE ACETATE [Concomitant]
     Active Substance: PREDNISOLONE ACETATE
  8. LEVOTHYROXINE SODIUM [Concomitant]
     Active Substance: LEVOTHYROXINE SODIUM
  9. BETIMOL [Concomitant]
     Active Substance: TIMOLOL
  10. NITROGLYCERIN [Concomitant]
     Active Substance: NITROGLYCERIN
  11. PANTOPRAZOLE SODIUM [Concomitant]
     Active Substance: PANTOPRAZOLE SODIUM
  12. NYSTATIN-TRIAMCINOLONE [Concomitant]
  13. PILOCARPINE HYDROCHLORIDE [Concomitant]
     Active Substance: PILOCARPINE HYDROCHLORIDE
  14. HYDROCHLOROTHIAZIDE [Concomitant]
     Active Substance: HYDROCHLOROTHIAZIDE
  15. CLONAZEPAM [Concomitant]
     Active Substance: CLONAZEPAM
  16. LEVETIRACETAM [Concomitant]
     Active Substance: LEVETIRACETAM
  17. LUMIGAN [Concomitant]
     Active Substance: BIMATOPROST
  18. FAMOTIDINE [Concomitant]
     Active Substance: FAMOTIDINE
  19. SODIUM SULFACETAMIDE-SULFUR [Concomitant]
  20. LOTEMAX [Concomitant]
     Active Substance: LOTEPREDNOL ETABONATE

REACTIONS (4)
  - Eyelid pain [Not Recovered/Not Resolved]
  - Erythema of eyelid [Not Recovered/Not Resolved]
  - Eye pain [Not Recovered/Not Resolved]
  - Ocular hypertension [Unknown]

NARRATIVE: CASE EVENT DATE: 20250118
